FAERS Safety Report 8202746-6 (Version None)
Quarter: 2012Q1

REPORT INFORMATION
  Report Type: 
  Country: None (occurrence: None)
  Receive Date: 20120312
  Receipt Date: 20120312
  Transmission Date: 20120608
  Serious: No
  Sender: FDA-Public Use
  Company Number: None

PATIENT
  Age: 41 Year
  Sex: Female
  Weight: 72.574 kg

DRUGS (2)
  1. BOTOX [Suspect]
     Indication: SKIN WRINKLING
     Dosage: 62 UNITS
     Route: 059
  2. RADIESSE [Concomitant]
     Indication: SKIN WRINKLING
     Dosage: 1.5 CC
     Route: 059

REACTIONS (25)
  - NERVOUS SYSTEM DISORDER [None]
  - FEELING ABNORMAL [None]
  - STREPTOCOCCUS TEST POSITIVE [None]
  - SINUSITIS [None]
  - PLATELET COUNT DECREASED [None]
  - ANXIETY [None]
  - TACHYCARDIA [None]
  - PYREXIA [None]
  - RASH ERYTHEMATOUS [None]
  - IMMUNE SYSTEM DISORDER [None]
  - FATIGUE [None]
  - SWELLING FACE [None]
  - ARTHRALGIA [None]
  - BLOOD CALCIUM DECREASED [None]
  - RHINORRHOEA [None]
  - LOCAL SWELLING [None]
  - BLOOD IMMUNOGLOBULIN G DECREASED [None]
  - DYSPNOEA EXERTIONAL [None]
  - PROTEIN TOTAL DECREASED [None]
  - BLOOD ALBUMIN DECREASED [None]
  - EPSTEIN-BARR VIRUS ANTIBODY POSITIVE [None]
  - DIARRHOEA [None]
  - MEMORY IMPAIRMENT [None]
  - PARVOVIRUS B19 TEST POSITIVE [None]
  - ALANINE AMINOTRANSFERASE INCREASED [None]
